FAERS Safety Report 5729045-6 (Version None)
Quarter: 2008Q2

REPORT INFORMATION
  Report Type: 
  Country: None (occurrence: None)
  Receive Date: 20080430
  Receipt Date: 20080417
  Transmission Date: 20081010
  Serious: Yes (Other)
  Sender: FDA-Public Use
  Company Number: DSU-2008-00564

PATIENT
  Age: 76 Year
  Sex: Female

DRUGS (8)
  1. OPENVAS (OLMESARTAN MEDOXOMIL) (20 MILLIGRAM, TABLET) (OLMESARTAN MEDO [Suspect]
     Indication: HYPERTENSION
     Dosage: 20 MG (20 MG, QD), PER ORAL
     Route: 048
     Dates: start: 20070115, end: 20070117
  2. SIMVASTATIN [Concomitant]
  3. CLOPIDOGREL BISULFATE [Concomitant]
  4. ADALAT [Concomitant]
  5. ACTONEL [Concomitant]
  6. CONDROSULF (CHONDROITIN SULFATE SODIUM) [Concomitant]
  7. ISOSORBIDE MONONITRATE [Concomitant]
  8. TENORETIC 100 [Concomitant]

REACTIONS (4)
  - ABDOMINAL DISTENSION [None]
  - CHEST PAIN [None]
  - DYSPNOEA [None]
  - PRURITUS [None]
